FAERS Safety Report 13441848 (Version 1)
Quarter: 2017Q2

REPORT INFORMATION
  Report Type: Spontaneous
  Country: US (occurrence: US)
  Receive Date: 20170413
  Receipt Date: 20170413
  Transmission Date: 20170830
  Serious: Yes (Other)
  Sender: FDA-Public Use
  Company Number: US-AMGEN-USASP2017053101

PATIENT
  Age: 59 Year
  Sex: Female

DRUGS (1)
  1. ENBREL [Suspect]
     Active Substance: ETANERCEPT
     Indication: PRODUCT USED FOR UNKNOWN INDICATION
     Dosage: 50 MG, QWK
     Route: 065

REACTIONS (9)
  - Viral upper respiratory tract infection [Unknown]
  - Abdominal discomfort [Not Recovered/Not Resolved]
  - Duodenitis [Not Recovered/Not Resolved]
  - Gastritis [Not Recovered/Not Resolved]
  - Feeling of despair [Not Recovered/Not Resolved]
  - Achlorhydria [Not Recovered/Not Resolved]
  - Gallbladder disorder [Not Recovered/Not Resolved]
  - Nodule [Unknown]
  - Infection [Unknown]
